FAERS Safety Report 9715755 (Version 3)
Quarter: 2014Q1

REPORT INFORMATION
  Report Type: Spontaneous
  Country: JP (occurrence: JP)
  Receive Date: 20131127
  Receipt Date: 20140220
  Transmission Date: 20141002
  Serious: Yes (Hospitalization)
  Sender: FDA-Public Use
  Company Number: JP-BAYER-2013-142557

PATIENT
  Age: 30 Year
  Sex: Female
  Weight: 42 kg

DRUGS (4)
  1. YAZ [Suspect]
     Indication: DYSMENORRHOEA
     Dosage: DAILY DOSE 1 DF
     Route: 048
     Dates: start: 20130923, end: 20131101
  2. YAZ [Suspect]
     Indication: MENORRHAGIA
  3. UNFRACTIONATED HEPARIN [Suspect]
     Indication: CEREBRAL THROMBOSIS
     Dosage: UNK
     Dates: start: 20131108, end: 20131204
  4. UNFRACTIONATED HEPARIN [Suspect]
     Indication: CEREBRAL INFARCTION

REACTIONS (11)
  - Cerebral thrombosis [Recovering/Resolving]
  - Headache [Recovering/Resolving]
  - Hypoaesthesia [Recovering/Resolving]
  - Monoplegia [Recovering/Resolving]
  - VIIth nerve paralysis [Recovering/Resolving]
  - Hypoaesthesia [Recovering/Resolving]
  - Cerebral infarction [Recovering/Resolving]
  - Epilepsy [Recovered/Resolved]
  - Convulsion [Recovered/Resolved]
  - Metrorrhagia [Recovered/Resolved]
  - Anaemia [Recovering/Resolving]
